FAERS Safety Report 7703527-X (Version None)
Quarter: 2011Q3

REPORT INFORMATION
  Report Type: 
  Country: None (occurrence: None)
  Receive Date: 20110823
  Receipt Date: 20110819
  Transmission Date: 20111222
  Serious: Yes (Hospitalization, Other)
  Sender: FDA-Public Use
  Company Number: FR-PFIZER INC-2011191590

PATIENT
  Age: 53 Year
  Sex: Male

DRUGS (6)
  1. REVIA [Suspect]
     Indication: ALCOHOL ABUSE
     Dosage: 1 MG PER DAY, 1 TABLET AT NOON
     Route: 048
  2. CLONAZEPAM [Suspect]
     Indication: BIPOLAR I DISORDER
     Dosage: 4 MG PER DAY
     Route: 048
  3. ZOLPIDEM [Suspect]
     Indication: INSOMNIA
     Dosage: 10 MG PER DAY, 1 TABLET AT BEDTIME
     Route: 048
  4. DEPAKOTE [Suspect]
     Indication: BIPOLAR I DISORDER
     Dosage: 1250 MG A DAY
     Route: 048
  5. MIRTAZAPINE [Suspect]
     Indication: BIPOLAR I DISORDER
     Dosage: 30 MG, 1X/DAY
     Route: 048
  6. EFFEXOR XR [Suspect]
     Indication: BIPOLAR I DISORDER
     Dosage: 150 MG A DAY, TWO 75 MG CAPSULES AT NOON
     Route: 048

REACTIONS (2)
  - HEPATITIS CHOLESTATIC [None]
  - PANCREATITIS ACUTE [None]
